FAERS Safety Report 7209722-0 (Version None)
Quarter: 2011Q1

REPORT INFORMATION
  Report Type: 
  Country: None (occurrence: None)
  Receive Date: 20110104
  Receipt Date: 20101222
  Transmission Date: 20110831
  Serious: Yes (Other)
  Sender: FDA-Public Use
  Company Number: US-MYLANLABS-2010S1023493

PATIENT
  Age: 23 Year
  Sex: Male
  Weight: 82 kg

DRUGS (1)
  1. MIRTAZAPINE [Suspect]
     Indication: DEPRESSION
     Dosage: 15 MILLIGRAM(S)
     Dates: start: 20090309

REACTIONS (5)
  - ABNORMAL DREAMS [None]
  - PARAESTHESIA [None]
  - FATIGUE [None]
  - ALCOHOLISM [None]
  - DRUG DEPENDENCE [None]
